FAERS Safety Report 9110555 (Version 1)
Quarter: 2013Q1

REPORT INFORMATION
  Report Type: Spontaneous
  Country: US (occurrence: US)
  Receive Date: 20130219
  Receipt Date: 20130219
  Transmission Date: 20140127
  Serious: No
  Sender: FDA-Public Use
  Company Number: US-BRACCO-008141

PATIENT
  Sex: Female

DRUGS (3)
  1. ISOVUE [Suspect]
     Indication: THROMBOLYSIS
     Dosage: RT. FEMORAL ARTERY THROUGH AORTA VIA AN INTERVENTIONAL CATHETER INTO THE ARTERY OF HER BRAIN.
     Route: 013
  2. ISOVUE [Suspect]
     Indication: THROMBOSIS
     Dosage: RT. FEMORAL ARTERY THROUGH AORTA VIA AN INTERVENTIONAL CATHETER INTO THE ARTERY OF HER BRAIN.
     Route: 013
  3. HEPARIN [Concomitant]
     Dosage: MIXED WITH ISOVUE
     Route: 013

REACTIONS (1)
  - Poor quality drug administered [Unknown]
